FAERS Safety Report 19577866 (Version 2)
Quarter: 2021Q3

REPORT INFORMATION
  Report Type: Spontaneous
  Country: US (occurrence: US)
  Receive Date: 20210719
  Receipt Date: 20210728
  Transmission Date: 20211014
  Serious: No
  Sender: FDA-Public Use
  Company Number: US-AMGEN-USASP2021106074

PATIENT
  Age: 69 Year
  Sex: Female
  Weight: 68 kg

DRUGS (16)
  1. CHOLESTOFF ORIGINAL [Concomitant]
     Active Substance: PHYTOSTEROLS
     Dosage: UNK
     Dates: start: 20181211
  2. ARMOUR THYROID [Concomitant]
     Active Substance: THYROID, PORCINE
     Dosage: 15 MILLIGRAM, QD
     Route: 048
     Dates: start: 20191210
  3. COVID?19 VACCINE [Concomitant]
     Dosage: UNK
     Dates: start: 20210628
  4. PROMETRIUM [Concomitant]
     Active Substance: PROGESTERONE
     Dosage: 100 MILLIGRAM
     Route: 048
     Dates: start: 20201203
  5. FISH OIL [Concomitant]
     Active Substance: FISH OIL
     Dosage: 1600 MG/5 ML
     Route: 048
     Dates: start: 20170418
  6. VOLTAREN [Concomitant]
     Active Substance: DICLOFENAC SODIUM
     Dosage: UNK UNK, QID
     Route: 061
     Dates: start: 20170209
  7. REPATHA [Suspect]
     Active Substance: EVOLOCUMAB
     Indication: TYPE V HYPERLIPIDAEMIA
  8. CELEBREX [Concomitant]
     Active Substance: CELECOXIB
     Dosage: 200 MILLIGRAM
     Route: 048
     Dates: start: 20200922
  9. REPATHA [Suspect]
     Active Substance: EVOLOCUMAB
     Indication: BLOOD CHOLESTEROL INCREASED
     Dosage: 140 MILLIGRAM, Q2WK
     Route: 058
     Dates: start: 20210426, end: 20210704
  10. EZETIMIBE. [Concomitant]
     Active Substance: EZETIMIBE
  11. ASPIRIN [ACETYLSALICYLIC ACID] [Concomitant]
     Active Substance: ASPIRIN
     Dosage: 81 MILLIGRAM
     Route: 048
     Dates: start: 20181211
  12. ESTRADIOL. [Concomitant]
     Active Substance: ESTRADIOL
     Dosage: PATCH 0.0375 MG/24 HOURS, 2 TIMES/WK
     Dates: start: 20200827
  13. NEXLETOL [Concomitant]
     Active Substance: BEMPEDOIC ACID
     Dosage: UNK
     Route: 048
     Dates: start: 20210628
  14. VITAMIN D3 [Concomitant]
     Active Substance: CHOLECALCIFEROL
     Dosage: 5000 INTL UNITS (125 MCG), QD
     Route: 048
     Dates: start: 20210426
  15. TUMS [Concomitant]
     Active Substance: CALCIUM CARBONATE
     Dosage: UNK
     Dates: start: 20170418
  16. LEVOFLOXACIN. [Concomitant]
     Active Substance: LEVOFLOXACIN

REACTIONS (12)
  - Abdominal discomfort [Recovering/Resolving]
  - Dyspnoea [Not Recovered/Not Resolved]
  - Sinus disorder [Recovering/Resolving]
  - Influenza like illness [Recovering/Resolving]
  - Neck pain [Recovering/Resolving]
  - Irritable bowel syndrome [Not Recovered/Not Resolved]
  - Arthralgia [Recovering/Resolving]
  - Vision blurred [Recovering/Resolving]
  - Fatigue [Not Recovered/Not Resolved]
  - Flatulence [Recovering/Resolving]
  - Tinnitus [Not Recovered/Not Resolved]
  - Headache [Recovering/Resolving]

NARRATIVE: CASE EVENT DATE: 2021
